FAERS Safety Report 18579901 (Version 6)
Quarter: 2021Q4

REPORT INFORMATION
  Report Type: Spontaneous
  Country: US (occurrence: US)
  Receive Date: 20201204
  Receipt Date: 20211119
  Transmission Date: 20220303
  Serious: No
  Sender: FDA-Public Use
  Company Number: US-PFIZER INC-2020475399

PATIENT
  Age: 13 Year
  Sex: Female
  Weight: 79.38 kg

DRUGS (2)
  1. GENOTROPIN [Suspect]
     Active Substance: SOMATROPIN
     Indication: Growth hormone deficiency
     Dosage: 1.6 MG, 1X/DAY
  2. ESTROGENS [Concomitant]
     Active Substance: ESTROGENS
     Dosage: UNK (CHANGES HER PATCH EVERY SATURDAY)

REACTIONS (3)
  - Drug dose omission by device [Unknown]
  - Device power source issue [Unknown]
  - Device failure [Unknown]

NARRATIVE: CASE EVENT DATE: 20200101
